FAERS Safety Report 18385740 (Version 1)
Quarter: 2020Q4

REPORT INFORMATION
  Report Type: Spontaneous
  Country: GB (occurrence: GB)
  Receive Date: 20201015
  Receipt Date: 20201015
  Transmission Date: 20210114
  Serious: Yes (Other)
  Sender: FDA-Public Use
  Company Number: GB-ACCORD-205235

PATIENT
  Sex: Male

DRUGS (21)
  1. GAMMA-AMINOBUTYRIC ACID [Suspect]
     Active Substance: .GAMMA.-AMINOBUTYRIC ACID
     Indication: PRODUCT USED FOR UNKNOWN INDICATION
     Dosage: LIPOSOMAL GABA WITH L THEANINE - SUPPLEMENT
  2. ZINC. [Suspect]
     Active Substance: ZINC
     Indication: PRODUCT USED FOR UNKNOWN INDICATION
     Dosage: SUPPLEMENT
  3. MAGNESIUM [Suspect]
     Active Substance: MAGNESIUM
     Indication: PRODUCT USED FOR UNKNOWN INDICATION
     Dosage: SUPPLEMENT
  4. MAGNESIUM SULFATE. [Suspect]
     Active Substance: MAGNESIUM SULFATE
     Indication: PRODUCT USED FOR UNKNOWN INDICATION
     Dosage: EBSOM BATH SALTS - SUPPLEMENT
  5. AMOXICILLIN. [Suspect]
     Active Substance: AMOXICILLIN
     Indication: PRODUCT USED FOR UNKNOWN INDICATION
     Dosage: FROM UK
  6. PREGABALIN. [Suspect]
     Active Substance: PREGABALIN
     Indication: PRODUCT USED FOR UNKNOWN INDICATION
     Dosage: MEDICINE FROM UK
  7. CANNABIDIOL [Suspect]
     Active Substance: CANNABIDIOL
     Indication: PRODUCT USED FOR UNKNOWN INDICATION
     Dosage: CBD OIL - SUPPLEMENT
  8. CELTIC SEA SALT [Suspect]
     Active Substance: SODIUM CHLORIDE
     Indication: PRODUCT USED FOR UNKNOWN INDICATION
     Dosage: CELTIC SEA SALT - SUPPLEMENT
  9. LAMOTRIGINE. [Suspect]
     Active Substance: LAMOTRIGINE
     Indication: PRODUCT USED FOR UNKNOWN INDICATION
  10. QUETIAPINE. [Suspect]
     Active Substance: QUETIAPINE
     Indication: PRODUCT USED FOR UNKNOWN INDICATION
     Dosage: MEDICINE FROM INDIA
  11. RIFAMPICIN [Suspect]
     Active Substance: RIFAMPIN
     Indication: PRODUCT USED FOR UNKNOWN INDICATION
     Dosage: MEDICINE FROM INDIA
  12. MINOCYCLINE [Suspect]
     Active Substance: MINOCYCLINE HYDROCHLORIDE
     Indication: PRODUCT USED FOR UNKNOWN INDICATION
     Dosage: MEDICINE FROM INDIA
  13. ASCORBIC ACID. [Suspect]
     Active Substance: ASCORBIC ACID
     Indication: PRODUCT USED FOR UNKNOWN INDICATION
     Dosage: LIPOSOMAL VITAMIN C - SUPPLEMENT
  14. SILYBUM MARIANUM/SILYBUM MARIANUM EXTRACT/SILYBUM MARIANUM FRUIT [Suspect]
     Active Substance: DIETARY SUPPLEMENT\HERBALS\MILK THISTLE
     Indication: PRODUCT USED FOR UNKNOWN INDICATION
     Dosage: SUPPLEMENT
  15. FLAGYL [Suspect]
     Active Substance: METRONIDAZOLE\METRONIDAZOLE HYDROCHLORIDE
     Indication: PRODUCT USED FOR UNKNOWN INDICATION
     Dosage: MEDICINE FROM INDIA
  16. GLUTATHIONE/GLUTATHIONE SODIUM [Suspect]
     Active Substance: GLUTATHIONE
     Indication: PRODUCT USED FOR UNKNOWN INDICATION
     Dosage: LIPOSOMAL GLUTATHIONE - SUPPLEMENT
  17. SULFAMETHOXAZOLE/SULFAMETHOXAZOLE SODIUM [Suspect]
     Active Substance: SULFAMETHOXAZOLE
     Indication: PRODUCT USED FOR UNKNOWN INDICATION
     Dosage: MEDICINE FROM INDIA
  18. TRIMETHOPRIM/TRIMETHOPRIM LACTATE/TRIMETHOPRIM SULFATE [Suspect]
     Active Substance: TRIMETHOPRIM
     Indication: PRODUCT USED FOR UNKNOWN INDICATION
     Dosage: MEDICINE FROM INDIA
  19. SACCHAROMYCES BOULARDII [Suspect]
     Active Substance: SACCHAROMYCES CEREVISIAE
     Indication: PRODUCT USED FOR UNKNOWN INDICATION
     Dosage: SUPPLEMENT
  20. ASPARTATE CALCIUM/ASPARTATE POTASSIUM/ASPARTATE SODIUM/ASPARTATE ZINC/ASPARTIC ACID/POTASSIUM HYDROG [Suspect]
     Active Substance: AMINO ACIDS
     Indication: PRODUCT USED FOR UNKNOWN INDICATION
     Dosage: SUPPLEMENT, L-ASPARTIC ACID
  21. ORNITHINE [Suspect]
     Active Substance: ORNITHINE
     Indication: PRODUCT USED FOR UNKNOWN INDICATION
     Dosage: L-ORTHANTHINE -SUPPLEMENT

REACTIONS (2)
  - Metal poisoning [Unknown]
  - Seizure [Unknown]

NARRATIVE: CASE EVENT DATE: 202006
